FAERS Safety Report 11647428 (Version 1)
Quarter: 2015Q4

REPORT INFORMATION
  Report Type: Spontaneous
  Country: US (occurrence: None)
  Receive Date: 20151019
  Receipt Date: 20151019
  Transmission Date: 20160304
  Serious: Yes (Hospitalization, Other)
  Sender: FDA-Public Use
  Company Number: None

PATIENT
  Age: 57 Year
  Sex: Male
  Weight: 78.5 kg

DRUGS (26)
  1. VORICONAROLE [Concomitant]
     Active Substance: VORICONAZOLE
  2. SYRINGE [Concomitant]
     Active Substance: DEVICE
  3. RIVAROXABAN [Concomitant]
     Active Substance: RIVAROXABAN
  4. METHYLPREDNISOLONE. [Concomitant]
     Active Substance: METHYLPREDNISOLONE
  5. DILTIAZEM [Concomitant]
     Active Substance: DILTIAZEM
  6. CEFEPIME [Concomitant]
     Active Substance: CEFEPIME HYDROCHLORIDE
  7. FENTANYL. [Concomitant]
     Active Substance: FENTANYL
  8. FAT EMULSION NOS [Concomitant]
     Active Substance: EGG PHOSPHOLIPIDS\SAFFLOWER OIL\SOYBEAN OIL
  9. URSODIOL. [Concomitant]
     Active Substance: URSODIOL
  10. LOPERAMIDE [Concomitant]
     Active Substance: LOPERAMIDE
  11. GANCICLOVIR. [Concomitant]
     Active Substance: GANCICLOVIR
  12. CYCLOSPORINE. [Concomitant]
     Active Substance: CYCLOSPORINE
  13. DOXYCYCLINE. [Concomitant]
     Active Substance: DOXYCYCLINE
  14. SODIUM BICARBONATE. [Concomitant]
     Active Substance: SODIUM BICARBONATE
  15. DAPSONE. [Concomitant]
     Active Substance: DAPSONE
  16. ACYCLOVIR. [Concomitant]
     Active Substance: ACYCLOVIR
  17. VORICONAZOLE. [Concomitant]
     Active Substance: VORICONAZOLE
  18. LOPAMIDOL [Concomitant]
  19. DIGOXIN. [Concomitant]
     Active Substance: DIGOXIN
  20. PROTONIX [Concomitant]
     Active Substance: PANTOPRAZOLE SODIUM
  21. MICAFUNGIN [Suspect]
     Active Substance: MICAFUNGIN
     Indication: ANTIFUNGAL PROPHYLAXIS
     Route: 042
     Dates: start: 20150921, end: 20151008
  22. AMIODARONE [Concomitant]
     Active Substance: AMIODARONE
  23. VANCOMYCIN [Concomitant]
     Active Substance: VANCOMYCIN
  24. FLORASTOR [Concomitant]
     Active Substance: SACCHAROMYCES CEREVISIAE
  25. LOMOTIL [Concomitant]
     Active Substance: ATROPINE SULFATE\DIPHENOXYLATE HYDROCHLORIDE
  26. LISINOPRIL. [Concomitant]
     Active Substance: LISINOPRIL

REACTIONS (2)
  - Blood bilirubin increased [None]
  - Jaundice [None]

NARRATIVE: CASE EVENT DATE: 20151014
